FAERS Safety Report 9310394 (Version 1)
Quarter: 2013Q2

REPORT INFORMATION
  Report Type: Spontaneous
  Country: US (occurrence: US)
  Receive Date: 20130527
  Receipt Date: 20130527
  Transmission Date: 20140414
  Serious: No
  Sender: FDA-Public Use
  Company Number: US-PFIZER INC-2013159081

PATIENT
  Sex: Female

DRUGS (6)
  1. CELEBREX [Suspect]
     Dosage: UNK
  2. LEVOTHYROXINE SODIUM [Suspect]
     Dosage: UNK
  3. CRESTOR [Suspect]
     Dosage: UNK
  4. ASPIRIN [Suspect]
     Dosage: LOW DOSE
  5. BACTRIM [Suspect]
     Dosage: UNK
  6. ZPAK [Suspect]
     Dosage: UNK

REACTIONS (1)
  - Nasopharyngitis [Unknown]
